FAERS Safety Report 9159197 (Version 2)
Quarter: 2013Q2

REPORT INFORMATION
  Report Type: Spontaneous
  Country: FR (occurrence: None)
  Receive Date: 20130213
  Receipt Date: 20130507
  Transmission Date: 20140414
  Serious: Yes (Hospitalization)
  Sender: FDA-Public Use
  Company Number: DSM-2013-00140

PATIENT
  Age: 78 Year
  Sex: Female
  Weight: 62 kg

DRUGS (7)
  1. HYDROCHLOROTHIAZIDE, OLMESARTAN MED OXOMIL)(TABLET)(HYDROCHLOROTHIAZIDE, OLMESARTAN MEDOXOMIL) [Suspect]
     Indication: HYPERTENSION
     Dosage: (1 IN 1 D)
     Route: 048
     Dates: start: 20121105, end: 20121119
  2. ISOPTINE(VERAPAMIL HYDROCHLORIDE) (240 MILLIGRAM, TABLET)(VERAPAMIL HYDROCHLORIDE) [Concomitant]
  3. HYPERIUM(RILMENIDINE)(1 MILLIGRAM, TABLET)(RILMENIDINE) [Concomitant]
  4. SPECIAFOLDINE(FOLIC ACID)(5 MILLIGRAM, TABLET)(FOLIC ACID) [Concomitant]
  5. ZOLPIDEM(ZOLPIDEM)(10 MILLIGRAM, TABLET)(ZOLPIDEM) [Concomitant]
  6. DOGMATIL(SULPIRIDE)(50 MILLIGRAM, TABLET) (SULPIRIDE) [Concomitant]
  7. ATHYMIL(MIANSERIN HYDROCHLORIDE)(TABLET)(MIANSERIN HYDROCHLORIDE) [Concomitant]

REACTIONS (1)
  - Toxic skin eruption [None]
